FAERS Safety Report 4509901-7 (Version None)
Quarter: 2004Q4

REPORT INFORMATION
  Report Type: 
  Country: None (occurrence: None)
  Receive Date: 20041119
  Receipt Date: 20041103
  Transmission Date: 20050328
  Serious: Yes (Hospitalization)
  Sender: FDA-Public Use
  Company Number: USA041183084

PATIENT
  Age: 56 Year
  Sex: Male

DRUGS (1)
  1. ZYPREXA [Suspect]
     Indication: TOURETTE'S DISORDER
     Dosage: 5 MG/1 DAY
     Dates: start: 20040601

REACTIONS (2)
  - LABORATORY TEST ABNORMAL [None]
  - NEOPLASM PROGRESSION [None]
